FAERS Safety Report 6262142-8 (Version None)
Quarter: 2009Q3

REPORT INFORMATION
  Report Type: 
  Country: None (occurrence: None)
  Receive Date: 20090709
  Receipt Date: 20090629
  Transmission Date: 20100115
  Serious: Yes (Death, Other)
  Sender: FDA-Public Use
  Company Number: US-JNJFOC-20090700172

PATIENT
  Sex: Male

DRUGS (2)
  1. TRAMADOL [Suspect]
     Indication: ARTHRALGIA
     Route: 065
  2. HYDROCODONE BITARTRATE [Suspect]
     Indication: ARTHRALGIA
     Route: 065

REACTIONS (5)
  - ARTERIOSCLEROSIS CORONARY ARTERY [None]
  - HEAD INJURY [None]
  - HYPERTENSIVE HEART DISEASE [None]
  - MALAISE [None]
  - MYOCARDIAL INFARCTION [None]
